FAERS Safety Report 8566719 (Version 3)
Quarter: 2012Q4

REPORT INFORMATION
  Report Type: Spontaneous
  Country: US (occurrence: None)
  Receive Date: 20120509
  Receipt Date: 20120905
  Transmission Date: 20130627
  Serious: Yes (Other)
  Sender: FDA-Public Use
  Company Number: AUR-APL-2012-02030

PATIENT
  Age: 81 Year
  Sex: Female
  Weight: 68.04 kg

DRUGS (6)
  1. ALENDRONIC ACID [Suspect]
     Indication: OSTEOPOROSIS
     Dosage: 1 IN 1 WK
     Route: 048
     Dates: start: 20120330, end: 20120422
  2. PLAVIX [Concomitant]
  3. HYDROCHLOROTHIAZIDE [Concomitant]
  4. CALCIUM CARBONATE [Concomitant]
  5. ACETAMINOPHEN [Concomitant]
  6. OMEGA 3 (LIPITAC) [Concomitant]

REACTIONS (8)
  - Feeling abnormal [None]
  - Pain in extremity [None]
  - Tremor [None]
  - Choking [None]
  - Dysstasia [None]
  - Hypophagia [None]
  - Walking aid user [None]
  - Gait disturbance [None]
